FAERS Safety Report 7575332-9 (Version None)
Quarter: 2011Q2

REPORT INFORMATION
  Report Type: 
  Country: None (occurrence: None)
  Receive Date: 20110627
  Receipt Date: 20090427
  Transmission Date: 20111010
  Serious: Yes (Hospitalization, Other)
  Sender: FDA-Public Use
  Company Number: PHHY2009DK14507

PATIENT
  Age: 28 Year
  Sex: Female

DRUGS (5)
  1. AMPICILLIN SODIUM [Concomitant]
  2. DICLOFENAC SODIUM [Suspect]
     Dosage: 50 MG, TID
     Route: 065
  3. ATOSIBAN [Concomitant]
     Indication: PREMATURE LABOUR
  4. BETAMETHASONE [Concomitant]
  5. METRONIDAZOLE [Concomitant]

REACTIONS (2)
  - PREMATURE LABOUR [None]
  - DRUG EXPOSURE DURING PREGNANCY [None]
